FAERS Safety Report 4465071-5 (Version None)
Quarter: 2004Q3

REPORT INFORMATION
  Report Type: 
  Country: None (occurrence: None)
  Receive Date: 20040928
  Receipt Date: 20040928
  Transmission Date: 20050211
  Serious: Yes (Other)
  Sender: FDA-Public Use
  Company Number: None

PATIENT
  Age: 32 Year
  Sex: Female
  Weight: 81.6475 kg

DRUGS (1)
  1. METOCLOPRAMIDE [Suspect]
     Dosage: 10MG 3/DAY ORAL
     Route: 048
     Dates: start: 20040926, end: 20041010

REACTIONS (3)
  - FATIGUE [None]
  - GASTROINTESTINAL DISORDER [None]
  - MOOD SWINGS [None]
